FAERS Safety Report 15098546 (Version 2)
Quarter: 2018Q3

REPORT INFORMATION
  Report Type: Report from Study
  Country: None (occurrence: CH)
  Receive Date: 20180630
  Receipt Date: 20180703
  Transmission Date: 20181010
  Serious: Yes (Hospitalization)
  Sender: FDA-Public Use
  Company Number: CH-ABBVIE-18K-151-2405256-00

PATIENT
  Sex: Male

DRUGS (4)
  1. DUODOPA [Suspect]
     Active Substance: CARBIDOPA\LEVODOPA
     Dosage: MORNING DOSE 6ML?CONTINUOUS RATE 3.3ML/H?EXTRA DOSE 0.7ML?16H THERAPY
     Route: 050
     Dates: start: 20170411, end: 20171003
  2. DUODOPA [Suspect]
     Active Substance: CARBIDOPA\LEVODOPA
     Indication: PARKINSON^S DISEASE
     Route: 050
     Dates: start: 20150623, end: 20170411
  3. DUODOPA [Suspect]
     Active Substance: CARBIDOPA\LEVODOPA
     Dosage: MORNING DOSE 3ML CONTINUOUS RATE 2.9ML/H EXTRA DOSE 0.7ML 16H THERAPY
     Route: 050
     Dates: start: 201806
  4. DUODOPA [Suspect]
     Active Substance: CARBIDOPA\LEVODOPA
     Dosage: MORNING DOSE 3ML CONTINUOUS RATE 2.7ML/H EXTRA DOSE 0.7M 16H THERAPY
     Route: 050
     Dates: start: 20171003, end: 201806

REACTIONS (1)
  - Deep brain stimulation [Unknown]
